FAERS Safety Report 5061553-6 (Version None)
Quarter: 2006Q3

REPORT INFORMATION
  Report Type: 
  Country: None (occurrence: None)
  Receive Date: 20060721
  Receipt Date: 20060711
  Transmission Date: 20061208
  Serious: Yes (Death, Hospitalization)
  Sender: FDA-Public Use
  Company Number: 227302

PATIENT
  Age: 50 Year
  Sex: Female
  Weight: 96.4 kg

DRUGS (1)
  1. AVASTIN [Suspect]
     Indication: GLIOBLASTOMA MULTIFORME
     Dosage: Q2W, INTRAVENOUS
     Route: 042
     Dates: start: 20060707

REACTIONS (2)
  - HAEMATOMA [None]
  - PULMONARY EMBOLISM [None]
